FAERS Safety Report 6257995-3 (Version None)
Quarter: 2009Q3

REPORT INFORMATION
  Report Type: 
  Country: None (occurrence: None)
  Receive Date: 20090702
  Receipt Date: 20090619
  Transmission Date: 20100115
  Serious: Yes (Hospitalization)
  Sender: FDA-Public Use
  Company Number: 2009-199108-NL

PATIENT
  Sex: Female

DRUGS (1)
  1. MARVELON [Suspect]
     Dosage: ORAL
     Route: 048
     Dates: end: 20090601

REACTIONS (1)
  - PLATELET COUNT DECREASED [None]
